FAERS Safety Report 16465144 (Version 1)
Quarter: 2019Q2

REPORT INFORMATION
  Report Type: Spontaneous
  Country: US (occurrence: US)
  Receive Date: 20190621
  Receipt Date: 20190621
  Transmission Date: 20190711
  Serious: Yes (Death)
  Sender: FDA-Public Use
  Company Number: US-PFIZER INC-2019265304

PATIENT
  Age: 68 Year
  Sex: Male

DRUGS (1)
  1. VIAGRA [Suspect]
     Active Substance: SILDENAFIL CITRATE
     Indication: ERECTILE DYSFUNCTION
     Dosage: 100 MG, AS NEEDED (1/2 TABLET TAKEN BY MOUTH AS NEEDED DAILY)
     Route: 048
     Dates: start: 20150715

REACTIONS (2)
  - Neoplasm malignant [Fatal]
  - Death [Fatal]

NARRATIVE: CASE EVENT DATE: 20190521
